FAERS Safety Report 5479049-6 (Version None)
Quarter: 2007Q4

REPORT INFORMATION
  Report Type: 
  Country: None (occurrence: None)
  Receive Date: 20071006
  Receipt Date: 20070924
  Transmission Date: 20080405
  Serious: Yes (Other)
  Sender: FDA-Public Use
  Company Number: US-PFIZER INC-2007081073

PATIENT
  Sex: Male
  Weight: 68 kg

DRUGS (5)
  1. CHANTIX [Suspect]
     Indication: EX-SMOKER
     Dosage: TEXT:DAILY
     Route: 048
  2. LORAZEPAM [Suspect]
     Indication: DRUG WITHDRAWAL SYNDROME
     Dosage: TEXT:AS NEEDED
  3. CRESTOR [Concomitant]
  4. OMACOR [Concomitant]
  5. FENOFIBRATE [Concomitant]

REACTIONS (16)
  - ABNORMAL DREAMS [None]
  - AGITATION [None]
  - ARTHRALGIA [None]
  - CONFUSIONAL STATE [None]
  - DIZZINESS [None]
  - DRUG WITHDRAWAL SYNDROME [None]
  - EMOTIONAL DISTRESS [None]
  - IRRITABILITY [None]
  - MENTAL DISORDER [None]
  - MOOD SWINGS [None]
  - MYOPIA [None]
  - PSYCHOMOTOR HYPERACTIVITY [None]
  - SENSATION OF HEAVINESS [None]
  - SPEECH DISORDER [None]
  - TREMOR [None]
  - VOMITING [None]
